FAERS Safety Report 18109634 (Version 1)
Quarter: 2020Q3

REPORT INFORMATION
  Report Type: Report from Study
  Country: GB (occurrence: GB)
  Receive Date: 20200804
  Receipt Date: 20200804
  Transmission Date: 20201103
  Serious: Yes (Other)
  Sender: FDA-Public Use
  Company Number: GB-AMGEN-GBRSL2020122604

PATIENT
  Age: 77 Year
  Sex: Female

DRUGS (1)
  1. AMGEVITA [Suspect]
     Active Substance: ADALIMUMAB
     Indication: UVEITIS
     Dosage: 40 MILLIGRAM, QWK
     Route: 065

REACTIONS (2)
  - Neoplasm malignant [Unknown]
  - Off label use [Unknown]
